FAERS Safety Report 18631828 (Version 2)
Quarter: 2020Q4

REPORT INFORMATION
  Report Type: Spontaneous
  Country: US (occurrence: US)
  Receive Date: 20201217
  Receipt Date: 20201231
  Transmission Date: 20210114
  Serious: Yes (Hospitalization)
  Sender: FDA-Public Use
  Company Number: US-BAXTER-2020BAX025906

PATIENT
  Age: 52 Year
  Sex: Female

DRUGS (5)
  1. DEXRAZOXANE. [Concomitant]
     Active Substance: DEXRAZOXANE
     Indication: PROPHYLAXIS
     Dosage: ON DAY 1
     Route: 042
  2. FILGRASTIM [Concomitant]
     Active Substance: FILGRASTIM
     Indication: NEUTROPENIA
     Route: 065
  3. DOXIL [Suspect]
     Active Substance: DOXORUBICIN HYDROCHLORIDE
     Indication: BREAST CANCER
     Dosage: UNK, ONGOING
     Route: 042
  4. CYCLOPHOSPHAMIDE FOR INJECTION, USP [Suspect]
     Active Substance: CYCLOPHOSPHAMIDE
     Indication: BREAST CANCER
     Route: 065
  5. DEXRAZOXANE. [Concomitant]
     Active Substance: DEXRAZOXANE
     Dosage: ON DAY 2 AND 3
     Route: 042

REACTIONS (5)
  - Incorrect dose administered [Unknown]
  - Administration site extravasation [Unknown]
  - Hypotension [Unknown]
  - Pleural effusion [Not Recovered/Not Resolved]
  - Neutropenia [Unknown]
